FAERS Safety Report 9539257 (Version 2)
Quarter: 2013Q4

REPORT INFORMATION
  Report Type: Spontaneous
  Country: US (occurrence: US)
  Receive Date: 20130920
  Receipt Date: 20131219
  Transmission Date: 20140711
  Serious: Yes (Hospitalization)
  Sender: FDA-Public Use
  Company Number: US-INCYTE CORPORATION-2013IN002125

PATIENT
  Age: 80 Year
  Sex: Male
  Weight: 77.55 kg

DRUGS (10)
  1. JAKAFI [Suspect]
     Indication: POLYCYTHAEMIA
     Dosage: 20 MG, 3 TIMES/WK (AFTER DIALYSIS)
     Route: 048
     Dates: start: 201309, end: 201309
  2. JAKAFI [Suspect]
     Indication: MYELOFIBROSIS
  3. LEVOTHYROXINE [Concomitant]
  4. ALLOPURINOL [Concomitant]
  5. SODIUM BICARBONATE [Concomitant]
  6. HUMALOG [Concomitant]
  7. LANTUS [Concomitant]
  8. CALCIUM ACETATE NEPHRO [Concomitant]
  9. MVI [Concomitant]
  10. ZINC [Concomitant]

REACTIONS (2)
  - Electrocardiogram T wave inversion [Recovering/Resolving]
  - Electrocardiogram QT prolonged [Recovering/Resolving]
